FAERS Safety Report 7078904-3 (Version None)
Quarter: 2010Q4

REPORT INFORMATION
  Report Type: 
  Country: None (occurrence: None)
  Receive Date: 20101102
  Receipt Date: 20101028
  Transmission Date: 20110411
  Serious: No
  Sender: FDA-Public Use
  Company Number: US-PFIZER INC-2010138113

PATIENT
  Sex: Male

DRUGS (2)
  1. TIKOSYN [Suspect]
     Dosage: UNK
     Route: 065
  2. DRONEDARONE [Suspect]
     Dosage: 400 MG, UNK
     Route: 048

REACTIONS (1)
  - RASH [None]
